FAERS Safety Report 14541606 (Version 1)
Quarter: 2018Q1

REPORT INFORMATION
  Report Type: Spontaneous
  Country: US (occurrence: US)
  Receive Date: 20180216
  Receipt Date: 20180216
  Transmission Date: 20180509
  Serious: No
  Sender: FDA-Public Use
  Company Number: US-BAYER-2018-027203

PATIENT
  Age: 70 Year
  Sex: Male
  Weight: 113 kg

DRUGS (3)
  1. ALEVE PM [Suspect]
     Active Substance: DIPHENHYDRAMINE HYDROCHLORIDE\NAPROXEN SODIUM
     Indication: INFLAMMATION
     Dosage: 2 DF, QD
     Route: 048
  2. ALEVE [Suspect]
     Active Substance: NAPROXEN SODIUM
     Indication: INFLAMMATION
     Dosage: UNK
  3. ALEVE PM [Suspect]
     Active Substance: DIPHENHYDRAMINE HYDROCHLORIDE\NAPROXEN SODIUM
     Indication: PAIN
     Dosage: 4 DF, QD
     Route: 048
     Dates: start: 20180208

REACTIONS (3)
  - Off label use [Unknown]
  - Extra dose administered [Unknown]
  - Product use in unapproved indication [Unknown]
